FAERS Safety Report 7704085-6 (Version None)
Quarter: 2011Q3

REPORT INFORMATION
  Report Type: 
  Country: None (occurrence: None)
  Receive Date: 20110729
  Receipt Date: 20100603
  Transmission Date: 20111222
  Serious: Yes (Hospitalization)
  Sender: FDA-Public Use
  Company Number: US-JNJFOC-20100602670

PATIENT
  Age: 67 Year
  Sex: Male
  Weight: 71.4 kg

DRUGS (2)
  1. IMODIUM [Suspect]
     Indication: DIARRHOEA
     Dosage: 1-2 TABLETS AS NEEDED
     Dates: start: 20000321, end: 20000524
  2. CAMPTOSAR [Suspect]
     Indication: COLON CANCER
     Dosage: 125 MG/M2, INTRAVENOUS
     Route: 042
     Dates: start: 20000307

REACTIONS (1)
  - ILEUS [None]
